FAERS Safety Report 16510806 (Version 1)
Quarter: 2019Q3

REPORT INFORMATION
  Report Type: Spontaneous
  Country: US (occurrence: US)
  Receive Date: 20190702
  Receipt Date: 20190702
  Transmission Date: 20191004
  Serious: No
  Sender: FDA-Public Use
  Company Number: US-BAYER-2019-118149

PATIENT
  Age: 57 Year
  Sex: Female

DRUGS (2)
  1. ESTRADIOL. [Suspect]
     Active Substance: ESTRADIOL
     Dosage: UNK
     Dates: start: 20190606
  2. PROGESTERONE. [Concomitant]
     Active Substance: PROGESTERONE

REACTIONS (2)
  - Product adhesion issue [None]
  - Wrong technique in product usage process [None]
